FAERS Safety Report 7465744-6 (Version None)
Quarter: 2011Q2

REPORT INFORMATION
  Report Type: 
  Country: None (occurrence: None)
  Receive Date: 20110509
  Receipt Date: 20110503
  Transmission Date: 20111010
  Serious: Yes (Death)
  Sender: FDA-Public Use
  Company Number: US-GENZYME-CAMP-1001264

PATIENT
  Sex: Male
  Weight: 6.2 kg

DRUGS (5)
  1. CYCLOSPORINE [Concomitant]
     Indication: PROPHYLAXIS AGAINST GRAFT VERSUS HOST DISEASE
     Dosage: UNK
     Route: 042
     Dates: start: 20071015
  2. CLOLAR [Suspect]
     Indication: ACUTE LEUKAEMIA
     Dosage: 13 MG (40 MG/M2), QDX5 DAYS -7 TO -3
     Route: 042
     Dates: start: 20071011, end: 20071015
  3. MYCOPHENOLATE MEFETIL [Concomitant]
     Indication: PROPHYLAXIS AGAINST GRAFT VERSUS HOST DISEASE
     Dosage: UNK
     Route: 042
     Dates: start: 20071015
  4. CAMPATH [Suspect]
     Indication: STEM CELL TRANSPLANT
     Dosage: 0.3 MG/KG, QD DAYS -12 TO -8
     Route: 042
     Dates: start: 20071007, end: 20071010
  5. MELPHALAN HYDROCHLORIDE [Suspect]
     Indication: STEM CELL TRANSPLANT
     Dosage: 140 MG/M2,ON DAY -2
     Route: 042
     Dates: start: 20071016, end: 20071016

REACTIONS (1)
  - RENAL IMPAIRMENT [None]
